FAERS Safety Report 6644939-5 (Version None)
Quarter: 2010Q1

REPORT INFORMATION
  Report Type: 
  Country: None (occurrence: None)
  Receive Date: 20100317
  Receipt Date: 20100305
  Transmission Date: 20100710
  Serious: Yes (Other)
  Sender: FDA-Public Use
  Company Number: 2010AP000348

PATIENT
  Sex: Female

DRUGS (5)
  1. PAROXETINE HYDROCHLORIDE [Suspect]
     Indication: DEPRESSION
     Dosage: 10 MG
  2. PROTRIPTYLINE [Concomitant]
  3. MAPROTILINE [Concomitant]
  4. BUPROPION HCL [Concomitant]
  5. LEVOTHYROXINE SODIUM [Concomitant]

REACTIONS (22)
  - ANDROGEN DEFICIENCY [None]
  - ANXIETY [None]
  - BIPOLAR II DISORDER [None]
  - BLOOD FOLLICLE STIMULATING HORMONE INCREASED [None]
  - BLOOD TESTOSTERONE DECREASED [None]
  - BLOOD TESTOSTERONE FREE DECREASED [None]
  - DEHYDROEPIANDROSTERONE DECREASED [None]
  - DEPRESSION [None]
  - DISTURBANCE IN SEXUAL AROUSAL [None]
  - DRUG WITHDRAWAL SYNDROME [None]
  - DYSTONIA [None]
  - DYSURIA [None]
  - EMOTIONAL DISTRESS [None]
  - FEELING ABNORMAL [None]
  - FEMALE SEXUAL AROUSAL DISORDER [None]
  - GENITAL DISCOMFORT [None]
  - GENITAL PAIN [None]
  - NOCTURIA [None]
  - OESTRADIOL DECREASED [None]
  - RESIDUAL URINE [None]
  - SUICIDAL IDEATION [None]
  - URINE FLOW DECREASED [None]
